FAERS Safety Report 4314130-6 (Version None)
Quarter: 2004Q1

REPORT INFORMATION
  Report Type: 
  Country: None (occurrence: None)
  Receive Date: 20040309
  Receipt Date: 20040120
  Transmission Date: 20041129
  Serious: Yes (Other)
  Sender: FDA-Public Use
  Company Number: FR-BRISTOL-MYERS SQUIBB COMPANY-12482071

PATIENT
  Age: 54 Year
  Sex: Female
  Weight: 54 kg

DRUGS (3)
  1. APROVEL TABS 150 MG [Suspect]
     Indication: HYPERTENSION
     Route: 048
     Dates: start: 20031120, end: 20040105
  2. ESTREVA [Concomitant]
  3. SURGESTONE [Concomitant]

REACTIONS (9)
  - ANGIONEUROTIC OEDEMA [None]
  - ARTERIOVENOUS FISTULA, ACQUIRED [None]
  - DYSPNOEA EXERTIONAL [None]
  - EYELID OEDEMA [None]
  - FACE OEDEMA [None]
  - HYPERTENSION [None]
  - PARAESTHESIA [None]
  - TELANGIECTASIA [None]
  - VENOUS OCCLUSION [None]
